FAERS Safety Report 13532804 (Version 3)
Quarter: 2017Q2

REPORT INFORMATION
  Report Type: Report from Study
  Country: CA (occurrence: CA)
  Receive Date: 20170510
  Receipt Date: 20170612
  Transmission Date: 20170830
  Serious: Yes (Hospitalization)
  Sender: FDA-Public Use
  Company Number: CA-OTSUKA-2017_010311

PATIENT
  Age: 65 Year
  Sex: Male
  Weight: 84.7 kg

DRUGS (3)
  1. *MELPHALAN [Suspect]
     Active Substance: MELPHALAN
     Indication: STEM CELL TRANSPLANT
     Dosage: 250 MG, UNK (ONE DOSE)
     Route: 042
     Dates: start: 20140623, end: 20140623
  2. BUSULFAN. [Suspect]
     Active Substance: BUSULFAN
     Indication: STEM CELL TRANSPLANT
     Dosage: 218 MG, UNK
     Route: 042
     Dates: start: 20140620, end: 20140622
  3. *LENALIDOMIDE [Suspect]
     Active Substance: LENALIDOMIDE
     Indication: STEM CELL TRANSPLANT
     Dosage: 5 MG, QD
     Route: 048
     Dates: start: 20141007

REACTIONS (4)
  - Gastroenteritis [Recovered/Resolved]
  - Influenza [Recovered/Resolved]
  - Dehydration [Recovered/Resolved]
  - Diarrhoea [Recovered/Resolved]

NARRATIVE: CASE EVENT DATE: 20170425
